FAERS Safety Report 19984412 (Version 1)
Quarter: 2021Q4

REPORT INFORMATION
  Report Type: Spontaneous
  Country: PL (occurrence: PL)
  Receive Date: 20211021
  Receipt Date: 20211021
  Transmission Date: 20220303
  Serious: Yes (Hospitalization, Other)
  Sender: FDA-Public Use
  Company Number: PL-002147023-NVSC2021PL222088

PATIENT
  Age: 40 Year
  Sex: Male

DRUGS (10)
  1. EPLERENONE [Suspect]
     Active Substance: EPLERENONE
     Indication: Product used for unknown indication
     Dosage: 1 DF, QD
     Route: 065
     Dates: start: 202011
  2. EPLERENONE [Suspect]
     Active Substance: EPLERENONE
     Dosage: 1 DF, QD
     Route: 065
     Dates: start: 201903
  3. RAMIPRIL [Suspect]
     Active Substance: RAMIPRIL
     Indication: Product used for unknown indication
     Dosage: 1 DF, QD (1X1)
     Route: 065
  4. IVABRADINE [Suspect]
     Active Substance: IVABRADINE
     Indication: Product used for unknown indication
     Dosage: 2 DF, QD
     Route: 065
     Dates: start: 201903
  5. IVABRADINE [Suspect]
     Active Substance: IVABRADINE
     Dosage: 2 DF, QD
     Route: 065
     Dates: start: 202011
  6. ENTRESTO [Suspect]
     Active Substance: SACUBITRIL\VALSARTAN
     Indication: Product used for unknown indication
     Dosage: 2 DF, QD
     Route: 065
     Dates: start: 202011
  7. TORSEMIDE [Suspect]
     Active Substance: TORSEMIDE
     Indication: Product used for unknown indication
     Dosage: 10 MG, QD  (1X1)
     Route: 065
     Dates: start: 201903
  8. TORSEMIDE [Suspect]
     Active Substance: TORSEMIDE
     Dosage: 20 MG, QD
     Route: 065
     Dates: start: 202011
  9. BISOPROLOL [Suspect]
     Active Substance: BISOPROLOL
     Indication: Product used for unknown indication
     Dosage: 1 DF, QD
     Route: 065
     Dates: start: 202011
  10. BISOPROLOL [Suspect]
     Active Substance: BISOPROLOL
     Dosage: 1 DF, QD (1X1)
     Route: 065
     Dates: start: 201903

REACTIONS (3)
  - Cardiac failure [Unknown]
  - Ventricular arrhythmia [Unknown]
  - Low cardiac output syndrome [Unknown]

NARRATIVE: CASE EVENT DATE: 20190301
